FAERS Safety Report 14056746 (Version 1)
Quarter: 2017Q4

REPORT INFORMATION
  Report Type: Spontaneous
  Country: TR (occurrence: TR)
  Receive Date: 20171006
  Receipt Date: 20171006
  Transmission Date: 20180321
  Serious: Yes (Death)
  Sender: FDA-Public Use
  Company Number: TR-PFIZER INC-2006000008

PATIENT
  Age: 36 Year
  Sex: Female

DRUGS (8)
  1. CISPLATIN. [Suspect]
     Active Substance: CISPLATIN
     Indication: T-CELL LYMPHOMA
     Dosage: 100 MG/M2, FOR 24 HOURS ON THE FIRST DAY
     Route: 042
  2. ETOPOSIDE. [Suspect]
     Active Substance: ETOPOSIDE
     Indication: T-CELL LYMPHOMA
     Dosage: 150 MG/M2, ON DAYS 1-5
     Route: 042
  3. DEXAMETHASONE. [Suspect]
     Active Substance: DEXAMETHASONE
     Indication: T-CELL LYMPHOMA
     Dosage: 40 MG, DAILY FOR 4 DAYS
  4. IDARUBICIN HCL [Suspect]
     Active Substance: IDARUBICIN HYDROCHLORIDE
     Indication: T-CELL LYMPHOMA
     Dosage: 10 MG/M2, ON DAYS 1-2
     Route: 042
  5. MESNA. [Suspect]
     Active Substance: MESNA
     Indication: T-CELL LYMPHOMA
     Dosage: 600 MG/M2, FOR 5 DAYS
     Route: 042
  6. CYTARABINE. [Suspect]
     Active Substance: CYTARABINE
     Indication: T-CELL LYMPHOMA
     Dosage: 2000 MG/M2, PER 12 HOURS ON THE SECOND DAY
     Route: 042
  7. IFOSFAMIDE. [Suspect]
     Active Substance: IFOSFAMIDE
     Indication: T-CELL LYMPHOMA
     Dosage: 1000 MG/M2, UNK
     Route: 042
  8. METHOTREXATE. [Suspect]
     Active Substance: METHOTREXATE
     Indication: T-CELL LYMPHOMA
     Route: 037

REACTIONS (1)
  - Leukoencephalopathy [Fatal]
